FAERS Safety Report 14162413 (Version 2)
Quarter: 2017Q4

REPORT INFORMATION
  Report Type: Spontaneous
  Country: IL (occurrence: IL)
  Receive Date: 20171106
  Receipt Date: 20171114
  Transmission Date: 20180321
  Serious: Yes (Life-Threatening, Hospitalization, Other)
  Sender: FDA-Public Use
  Company Number: IL-ALEXION PHARMACEUTICALS INC.-A201712115

PATIENT
  Age: 19 Year
  Sex: Male

DRUGS (2)
  1. SOLIRIS [Suspect]
     Active Substance: ECULIZUMAB
     Indication: HAEMOLYTIC URAEMIC SYNDROME
     Dosage: 900 MG, EVERY WEEK
     Route: 065
     Dates: start: 20170828
  2. SOLIRIS [Suspect]
     Active Substance: ECULIZUMAB
     Dosage: 1200 MG, EVERY 2 WEEKS
     Route: 065

REACTIONS (7)
  - Malignant hypertension [Recovering/Resolving]
  - Brain oedema [Unknown]
  - Seizure [Unknown]
  - Loss of consciousness [Unknown]
  - Subarachnoid haemorrhage [Unknown]
  - Pulmonary oedema [Recovered/Resolved]
  - Hypoventilation [Unknown]

NARRATIVE: CASE EVENT DATE: 20170913
